FAERS Safety Report 5246495-5 (Version None)
Quarter: 2007Q1

REPORT INFORMATION
  Report Type: 
  Country: None (occurrence: None)
  Receive Date: 20070216
  Receipt Date: 20070201
  Transmission Date: 20070707
  Serious: Yes (Hospitalization)
  Sender: FDA-Public Use
  Company Number: 2006SP003823

PATIENT
  Age: 66 Year
  Sex: Male
  Weight: 76.8 kg

DRUGS (8)
  1. XOPENEX HFA [Suspect]
     Indication: CHRONIC OBSTRUCTIVE PULMONARY DISEASE
     Dosage: 90 MG/3ML;PRN;INHALATION
     Route: 055
     Dates: start: 20060901
  2. PRILOSEC [Concomitant]
  3. OXYGEN [Concomitant]
  4. ASMANEX TWISTHALER [Concomitant]
  5. ATROVENT [Concomitant]
  6. LACTOBACILLUS [Concomitant]
  7. ACIDOPHILUS [Concomitant]
  8. VITAMINS [Concomitant]

REACTIONS (6)
  - ANGINA UNSTABLE [None]
  - DIZZINESS [None]
  - DYSPNOEA [None]
  - MYOCARDIAL ISCHAEMIA [None]
  - NAUSEA [None]
  - WHEEZING [None]
